FAERS Safety Report 5892266-6 (Version None)
Quarter: 2008Q3

REPORT INFORMATION
  Report Type: 
  Country: None (occurrence: None)
  Receive Date: 20080919
  Receipt Date: 20080910
  Transmission Date: 20090109
  Serious: Yes (Other)
  Sender: FDA-Public Use
  Company Number: APP200800327

PATIENT
  Age: 32 Year
  Sex: Female

DRUGS (4)
  1. BUPIVACAINE HYDROCHLORIDE AND EPINEPHRINE [Suspect]
     Indication: MUSCULOSKELETAL PAIN
     Dosage: 0.25% CONTINUOUS VIA PAIN PUMP
     Dates: start: 20040421, end: 20040423
  2. MARCAINE [Suspect]
     Indication: MUSCULOSKELETAL PAIN
     Dosage: 200 ML CONTINUOUS VIA PAIN PUMP
     Dates: start: 20040423
  3. PAIN PUMP [Suspect]
     Indication: MUSCULOSKELETAL PAIN
     Dates: start: 20040421
  4. LIDOCAINE WITH EPINEPHRINE (XYLOCAINE-EPINEPHRINE) [Concomitant]

REACTIONS (2)
  - BURSITIS [None]
  - CHONDROLYSIS [None]
